FAERS Safety Report 12758833 (Version 4)
Quarter: 2016Q4

REPORT INFORMATION
  Report Type: Report from Study
  Country: DE (occurrence: JP)
  Receive Date: 20160919
  Receipt Date: 20161025
  Transmission Date: 20170207
  Serious: Yes (Hospitalization)
  Sender: FDA-Public Use
  Company Number: JP-FRI-1000087526

PATIENT
  Age: 82 Year
  Sex: Female
  Weight: 59 kg

DRUGS (7)
  1. AMLODIPINE [Concomitant]
     Active Substance: AMLODIPINE BESYLATE
     Indication: PRODUCT USED FOR UNKNOWN INDICATION
     Dosage: UNK
     Dates: start: 20160229
  2. FUROSEMIDE. [Concomitant]
     Active Substance: FUROSEMIDE
     Indication: PRODUCT USED FOR UNKNOWN INDICATION
     Dosage: UNK
     Dates: start: 20160229
  3. IRBETAN [Concomitant]
     Active Substance: IRBESARTAN
     Indication: PRODUCT USED FOR UNKNOWN INDICATION
     Dosage: UNK
     Dates: start: 20160229
  4. MEMANTINE HCL TABLETS USP 10 MG [Suspect]
     Active Substance: MEMANTINE HYDROCHLORIDE
     Dosage: 20 MG, QD
     Route: 048
     Dates: start: 20160821, end: 20160908
  5. RIVASTACH [Concomitant]
     Active Substance: RIVASTIGMINE
     Indication: PRODUCT USED FOR UNKNOWN INDICATION
     Dosage: UNK
     Dates: start: 20160416
  6. MEMANTINE HCL TABLETS USP 10 MG [Suspect]
     Active Substance: MEMANTINE HYDROCHLORIDE
     Indication: DEMENTIA ALZHEIMER^S TYPE
     Dosage: UNK UNK, QD
     Route: 048
     Dates: start: 20160724, end: 20160820
  7. MAGMITT [Concomitant]
     Active Substance: MAGNESIUM OXIDE
     Indication: PRODUCT USED FOR UNKNOWN INDICATION
     Dosage: UNK
     Dates: start: 20160229

REACTIONS (16)
  - Renal impairment [Recovered/Resolved]
  - Activities of daily living impaired [None]
  - Dysstasia [None]
  - Gait disturbance [None]
  - Dehydration [None]
  - Nephrogenic diabetes insipidus [None]
  - Altered state of consciousness [Recovered/Resolved]
  - Haematocrit decreased [None]
  - Aggression [None]
  - Speech disorder [None]
  - Pyelonephritis acute [None]
  - Feeding disorder [None]
  - Haemoglobin decreased [None]
  - Urinary tract infection [None]
  - Blood alkaline phosphatase increased [None]
  - Red blood cell count decreased [None]

NARRATIVE: CASE EVENT DATE: 20160909
